FAERS Safety Report 9366515 (Version 3)
Quarter: 2013Q3

REPORT INFORMATION
  Report Type: Report from Study
  Country: BR (occurrence: BR)
  Receive Date: 20130625
  Receipt Date: 20130719
  Transmission Date: 20140515
  Serious: No
  Sender: FDA-Public Use
  Company Number: BR-ROCHE-1238039

PATIENT
  Age: 57 Year
  Sex: Female
  Weight: 67.5 kg

DRUGS (11)
  1. BEVACIZUMAB [Suspect]
     Indication: OVARIAN CANCER
     Dosage: LAST DOSE PRIOR TO SAE:16/MAY/2013
     Route: 042
     Dates: start: 20111005, end: 20130613
  2. CARBOPLATIN [Suspect]
     Indication: OVARIAN CANCER
     Dosage: 603.78 AUC6, LAST DOSE PRIOR TO SAE ON 07/FEB/2012
     Route: 042
     Dates: start: 20111006
  3. PACLITAXEL [Suspect]
     Indication: OVARIAN CANCER
     Dosage: LAST DOSE PRIOR TO SAE ON 07/FEB/2012
     Route: 042
     Dates: start: 20111006
  4. AMLODIPINE [Concomitant]
     Route: 065
     Dates: start: 2011
  5. SIMVASTATIN [Concomitant]
     Route: 065
     Dates: start: 2006
  6. LOSARTAN [Concomitant]
     Route: 065
     Dates: start: 2006
  7. DIAZEPAM [Concomitant]
     Route: 065
     Dates: start: 20111117
  8. CAPTOPRIL [Concomitant]
     Route: 065
     Dates: start: 2012
  9. DIPIRONE [Concomitant]
     Route: 065
     Dates: start: 20130321
  10. HYDROCHLOROTHIAZIDE [Concomitant]
     Route: 065
     Dates: start: 2006
  11. LEVOTHYROXINE [Concomitant]
     Route: 065
     Dates: start: 2006

REACTIONS (1)
  - Cardiac enzymes increased [Not Recovered/Not Resolved]
